FAERS Safety Report 9215429 (Version 1)
Quarter: 2013Q2

REPORT INFORMATION
  Report Type: Report from Study
  Country: BR (occurrence: BR)
  Receive Date: 20130405
  Receipt Date: 20130405
  Transmission Date: 20140414
  Serious: Yes (Other)
  Sender: FDA-Public Use
  Company Number: BR-AMGEN-BRACT2011037867

PATIENT
  Sex: 0
  Weight: 81 kg

DRUGS (2)
  1. DENOSUMAB [Suspect]
     Indication: PROSTATE CANCER
  2. VITAMIN D [Concomitant]
     Dosage: UNK

REACTIONS (1)
  - Osteonecrosis of jaw [Unknown]
